FAERS Safety Report 5691798-3 (Version None)
Quarter: 2008Q2

REPORT INFORMATION
  Report Type: 
  Country: None (occurrence: None)
  Receive Date: 20080402
  Receipt Date: 20080326
  Transmission Date: 20081010
  Serious: Yes (Life-Threatening, Hospitalization)
  Sender: FDA-Public Use
  Company Number: PHBS2008JP03719

PATIENT
  Age: 54 Year
  Sex: Female
  Weight: 45 kg

DRUGS (2)
  1. BROMOCRIPTINE MESYLATE [Suspect]
     Indication: PITUITARY TUMOUR BENIGN
     Dosage: 2.5 MG, ONCE/SINGLE
     Route: 048
  2. OCTREOTIDE ACETATE [Suspect]
     Indication: PITUITARY TUMOUR BENIGN
     Dosage: 100 UG, ONCE/SINGLE
     Route: 042

REACTIONS (12)
  - BLOOD GROWTH HORMONE DECREASED [None]
  - BLOOD PROLACTIN DECREASED [None]
  - BLOOD THYROID STIMULATING HORMONE DECREASED [None]
  - DIABETES INSIPIDUS [None]
  - HEADACHE [None]
  - HYPOPITUITARISM [None]
  - INFARCTION [None]
  - NAUSEA [None]
  - NECROSIS [None]
  - PITUITARY HAEMORRHAGE [None]
  - SURGERY [None]
  - VISUAL DISTURBANCE [None]
